FAERS Safety Report 5810606-0 (Version None)
Quarter: 2008Q3

REPORT INFORMATION
  Report Type: 
  Country: None (occurrence: None)
  Receive Date: 20080710
  Receipt Date: 20080626
  Transmission Date: 20090109
  Serious: Yes (Other)
  Sender: FDA-Public Use
  Company Number: 2008017167

PATIENT
  Age: 3 Year
  Weight: 16.7831 kg

DRUGS (2)
  1. CHILDREN'S SUDAFED NASAL DECONGESTANT (PSEUDOEPHEDRINE) [Suspect]
     Indication: NASOPHARYNGITIS
     Dosage: RECOMMENDED DOSE, ONCE (1 IN 1 D), ORAL
     Route: 048
     Dates: start: 20080101, end: 20080101
  2. PREVACID [Concomitant]

REACTIONS (3)
  - DYSPNOEA [None]
  - RASH [None]
  - REACTION TO DRUG EXCIPIENTS [None]
